FAERS Safety Report 10911357 (Version 2)
Quarter: 2015Q4

REPORT INFORMATION
  Report Type: Report from Study
  Country: JP (occurrence: JP)
  Receive Date: 20150313
  Receipt Date: 20151002
  Transmission Date: 20160304
  Serious: Yes (Death, Other)
  Sender: FDA-Public Use
  Company Number: JP-AMGEN-JPNCT2013080009

PATIENT
  Age: 68 Year
  Sex: Male
  Weight: 74 kg

DRUGS (51)
  1. OXINORM                            /00045603/ [Suspect]
     Active Substance: OXYCODONE HYDROCHLORIDE
     Indication: PRODUCT USED FOR UNKNOWN INDICATION
     Dosage: 25 MG, QD
     Route: 048
     Dates: start: 20130301, end: 20130610
  2. CISPLATIN. [Concomitant]
     Active Substance: CISPLATIN
     Dosage: UNK
     Route: 065
     Dates: start: 20111102, end: 20111221
  3. TS-1 [Concomitant]
     Active Substance: GIMERACIL\OTERACIL\TEGAFUR
     Dosage: UNK
     Route: 065
     Dates: start: 20120725, end: 20120831
  4. GEMZAR [Concomitant]
     Active Substance: GEMCITABINE HYDROCHLORIDE
     Dosage: UNK
     Route: 065
     Dates: start: 20121128, end: 20130515
  5. MUCOSTA [Concomitant]
     Active Substance: REBAMIPIDE
     Dosage: 300 MG, QD
     Route: 048
     Dates: start: 20121107, end: 20130702
  6. CALONAL [Concomitant]
     Active Substance: ACETAMINOPHEN
     Dosage: 400 MG, QD
     Route: 048
     Dates: start: 20120304, end: 20120916
  7. RESTAMIN                           /00000401/ [Concomitant]
     Dosage: UNK
     Route: 050
     Dates: start: 20130301, end: 20130604
  8. DEXALTIN [Concomitant]
     Active Substance: DEXAMETHASONE
     Dosage: PROPER DOSE
     Route: 050
     Dates: start: 20120326, end: 20130705
  9. DENOSUMAB [Suspect]
     Active Substance: DENOSUMAB
     Indication: METASTASES TO BONE
     Dosage: 120 MG, UNK
     Route: 058
     Dates: start: 20130304, end: 20130529
  10. CARBOPLATIN. [Concomitant]
     Active Substance: CARBOPLATIN
     Dosage: UNK
     Route: 065
     Dates: start: 20120111, end: 20120111
  11. PICIBANIL [Concomitant]
     Active Substance: OK-432
     Dosage: 5 KE, QD
     Route: 033
     Dates: start: 20120905, end: 20120907
  12. MAGLAX [Concomitant]
     Active Substance: MAGNESIUM OXIDE
     Dosage: 330-990 MG, QD
     Route: 048
     Dates: start: 20121102, end: 20130702
  13. MYSER                              /00115501/ [Concomitant]
     Dosage: UNK
     Route: 050
     Dates: start: 20130301, end: 20130604
  14. VOLLEY [Concomitant]
     Active Substance: BUTENAFINE HYDROCHLORIDE
     Dosage: UNK
     Route: 050
     Dates: start: 20130107, end: 20130705
  15. SODIUM GUALENATE HYDRATE [Concomitant]
     Active Substance: SODIUM GUALENATE MONOHYDRATE
     Dosage: 2 G, AS NECESSARY
     Route: 050
     Dates: start: 20120826, end: 20131118
  16. LOPEMIN                            /00384302/ [Concomitant]
     Active Substance: LOPERAMIDE HYDROCHLORIDE
     Dosage: 1 MG, QD
     Route: 048
     Dates: start: 20130108, end: 20130110
  17. GEMCITABINE [Suspect]
     Active Substance: GEMCITABINE\GEMCITABINE HYDROCHLORIDE
     Indication: PRODUCT USED FOR UNKNOWN INDICATION
     Dosage: UNK
     Route: 065
     Dates: start: 20121128, end: 20130515
  18. PRIMPERAN [Concomitant]
     Active Substance: METOCLOPRAMIDE HYDROCHLORIDE
     Dosage: 15 MG, QD
     Route: 048
     Dates: start: 20120323, end: 20130514
  19. ZANTAC [Concomitant]
     Active Substance: RANITIDINE HYDROCHLORIDE
     Dosage: 300 MG, QD
     Route: 048
     Dates: start: 20120410, end: 20130702
  20. ERLOTINIB [Concomitant]
     Active Substance: ERLOTINIB
     Dosage: UNK
     Route: 065
     Dates: start: 20121226, end: 20130301
  21. ALMETA [Concomitant]
     Active Substance: ALCLOMETASONE DIPROPIONATE
     Dosage: PROPER DOSE
     Route: 050
     Dates: start: 20130301, end: 20130604
  22. CRAVIT [Concomitant]
     Active Substance: LEVOFLOXACIN
     Dosage: 500 MG, QD
     Route: 048
     Dates: start: 20120305, end: 20121031
  23. CALCI CHEW [Concomitant]
     Dosage: 1 DF, QD
     Route: 048
     Dates: start: 20130318, end: 20130430
  24. ALIMTA [Concomitant]
     Active Substance: PEMETREXED DISODIUM
     Dosage: UNK
     Route: 065
     Dates: start: 20111102, end: 20120207
  25. AVASTIN [Concomitant]
     Active Substance: BEVACIZUMAB
     Dosage: UNK
     Route: 065
     Dates: start: 20120229, end: 20120321
  26. ABRAXANE [Concomitant]
     Active Substance: PACLITAXEL
     Dosage: UNK
     Route: 065
     Dates: start: 20130605, end: 20130612
  27. NOVAMIN                            /00013301/ [Concomitant]
     Active Substance: PROCHLORPERAZINE MALEATE
     Dosage: 10 MG, QD
     Route: 048
     Dates: start: 20130302, end: 20130308
  28. PURSENNID                          /00142207/ [Concomitant]
     Active Substance: SENNOSIDES A AND B
     Dosage: 24 MG, UNK
     Route: 048
     Dates: start: 20120304, end: 20120307
  29. MYSLEE [Concomitant]
     Active Substance: ZOLPIDEM TARTRATE
     Dosage: 5 MG, QD
     Route: 048
     Dates: start: 20120228, end: 20121115
  30. LOXONIN [Concomitant]
     Active Substance: LOXOPROFEN SODIUM
     Dosage: 60 MG, AS NECESSARY
     Route: 048
     Dates: start: 20120305, end: 20130702
  31. SOLU-MEDROL [Concomitant]
     Active Substance: METHYLPREDNISOLONE SODIUM SUCCINATE
     Dosage: 40 MG, QD
     Route: 042
     Dates: start: 20130522, end: 20130522
  32. PANTOSIN [Concomitant]
     Active Substance: PANTETHINE
     Dosage: 100-300MG, QD
     Route: 048
     Dates: start: 20121102, end: 20130701
  33. HIRUDOID                           /00723702/ [Concomitant]
     Active Substance: GLYCOSAMINOGLYCANS
     Dosage: A PROPER DOSE
     Route: 050
     Dates: start: 20130112, end: 20130318
  34. TRANSAMIN [Concomitant]
     Active Substance: TRANEXAMIC ACID
     Dosage: 750 MG, QD
     Route: 048
     Dates: start: 20120326, end: 20120401
  35. BIOFERMIN                          /07958301/ [Concomitant]
     Dosage: 36 MG, QD
     Route: 048
     Dates: start: 20130112, end: 20130117
  36. CELECOXIB. [Concomitant]
     Active Substance: CELECOXIB
     Dosage: 200 MG, QD
     Route: 048
     Dates: start: 20121226, end: 20130106
  37. OXYCONTIN [Suspect]
     Active Substance: OXYCODONE HYDROCHLORIDE
     Indication: PRODUCT USED FOR UNKNOWN INDICATION
     Dosage: 10 MG, QD
     Route: 048
     Dates: start: 20130301, end: 20130406
  38. DOCETAXEL. [Concomitant]
     Active Substance: DOCETAXEL
     Dosage: UNK
     Route: 065
     Dates: start: 20120229, end: 20120321
  39. TARCEVA [Concomitant]
     Active Substance: ERLOTINIB HYDROCHLORIDE
     Dosage: UNK
     Route: 065
     Dates: start: 20121226, end: 20130301
  40. ALLOPURINOL. [Concomitant]
     Active Substance: ALLOPURINOL
     Dosage: 200 MG, QD
     Route: 048
     Dates: end: 20130702
  41. PREDONINE [Concomitant]
     Active Substance: PREDNISOLONE\PREDNISOLONE ACETATE\PREDNISOLONE SODIUM SUCCINATE
     Dosage: 7.5-30MG/DAY
     Route: 048
     Dates: start: 20120410, end: 20121112
  42. UROKINASE [Concomitant]
     Active Substance: UROKINASE
     Dosage: 60000 IU, QD
     Route: 033
     Dates: start: 20120904, end: 20120904
  43. CELECOX [Concomitant]
     Active Substance: CELECOXIB
     Dosage: UNK
     Route: 048
     Dates: start: 20121226, end: 20130106
  44. PEMETREXED [Concomitant]
     Active Substance: PEMETREXED
     Dosage: UNK
     Route: 065
     Dates: start: 20111102, end: 20120207
  45. GRANULOCYTE COLONY STIMULATING FACTOR [Concomitant]
     Active Substance: GRANULOCYTE COLONY-STIMULATING FACTOR NOS
     Dosage: 100 MUG, QD
     Route: 042
     Dates: start: 20121022, end: 20121118
  46. CALSED [Concomitant]
     Dosage: UNK
     Route: 065
     Dates: start: 20121010, end: 20121107
  47. SAYMOTIN [Concomitant]
     Active Substance: KALLIDINOGENASE
     Dosage: 3 DF, QD
     Route: 048
     Dates: end: 20120413
  48. LENDORMIN [Concomitant]
     Active Substance: BROTIZOLAM
     Dosage: 0.25 MG, QD
     Route: 048
     Dates: start: 20121116, end: 20130702
  49. CYTOTEC [Concomitant]
     Active Substance: MISOPROSTOL
     Dosage: 200 MUG, AS NECESSARY
     Route: 048
     Dates: start: 20120307, end: 20120702
  50. DECADRON [Concomitant]
     Active Substance: DEXAMETHASONE
     Dosage: 8 MG, QD
     Route: 048
     Dates: start: 20120321, end: 20130605
  51. METOCLOPRAMIDE. [Concomitant]
     Active Substance: METOCLOPRAMIDE
     Dosage: 15 MG, QD
     Route: 048
     Dates: start: 20130402, end: 20130514

REACTIONS (12)
  - Nausea [Recovered/Resolved]
  - Neutrophil count decreased [Recovered/Resolved]
  - Hyperkalaemia [Recovered/Resolved]
  - Constipation [Recovered/Resolved]
  - Decreased appetite [Recovered/Resolved]
  - Renal impairment [Unknown]
  - Dyspepsia [Recovered/Resolved]
  - Neutrophil count decreased [Recovered/Resolved]
  - Anaemia [Recovering/Resolving]
  - Contusion [Recovered/Resolved]
  - White blood cell count decreased [Recovered/Resolved]
  - Constipation [Recovered/Resolved]

NARRATIVE: CASE EVENT DATE: 20130310
